FAERS Safety Report 19229173 (Version 8)
Quarter: 2022Q1

REPORT INFORMATION
  Report Type: Report from Study
  Country: EG (occurrence: EG)
  Receive Date: 20210507
  Receipt Date: 20220226
  Transmission Date: 20220423
  Serious: Yes (Other)
  Sender: FDA-Public Use
  Company Number: NVSC2021EG084900

PATIENT
  Age: 38 Year
  Sex: Male

DRUGS (22)
  1. COSENTYX [Suspect]
     Active Substance: SECUKINUMAB
     Indication: Psoriatic arthropathy
     Dosage: 150 MG, Q2W (1 PEN EVERY 2 WEEKS)
     Route: 058
     Dates: start: 20210331
  2. COSENTYX [Suspect]
     Active Substance: SECUKINUMAB
     Indication: Psoriasis
     Dosage: UNK
     Route: 065
  3. COSENTYX [Suspect]
     Active Substance: SECUKINUMAB
     Dosage: UNK
     Route: 065
  4. COSENTYX [Suspect]
     Active Substance: SECUKINUMAB
     Dosage: 150 MG (1 PEN AT WEEK 0 THEN 1 PEN AFTER 2 WEEKS) FOR A MONTH THEN 1 PEN EVERY MONTH FOR 5 MONTHS)
     Route: 058
     Dates: start: 20210401
  5. COSENTYX [Suspect]
     Active Substance: SECUKINUMAB
     Dosage: UNK (MAINTAINANCE DOSE)
     Route: 065
     Dates: start: 202105
  6. COSENTYX [Suspect]
     Active Substance: SECUKINUMAB
     Dosage: UNK
     Route: 065
     Dates: start: 20210730, end: 202108
  7. COSENTYX [Suspect]
     Active Substance: SECUKINUMAB
     Dosage: 150 MG (1 PEN AT WEEK 0 THEN 1 PEN AFTER 2 WEEKS) FOR A MONTH THEN 1 PEN EVERY MONTH FOR 5 MONTHS)
     Route: 058
     Dates: start: 202109, end: 202109
  8. COSENTYX [Suspect]
     Active Substance: SECUKINUMAB
     Dosage: 150 MG (1 PEN AT WEEK 0 THEN 1 PEN AFTER 2 WEEKS) FOR A MONTH THEN 1 PEN EVERY MONTH FOR 5 MONTHS)
     Route: 058
     Dates: start: 202109
  9. COSENTYX [Suspect]
     Active Substance: SECUKINUMAB
     Dosage: UNK (MAINTAINENCE DOSE)
     Route: 065
     Dates: start: 202201
  10. COSENTYX [Suspect]
     Active Substance: SECUKINUMAB
     Dosage: 300 MG, QMO
     Route: 065
     Dates: start: 20220207
  11. VITAMIN D NOS [Concomitant]
     Active Substance: VITAMIN D NOS
     Indication: Product used for unknown indication
     Dosage: 0.25 AMPOULE, QW
     Route: 065
     Dates: start: 20220101
  12. ALFACALCIDOL [Concomitant]
     Active Substance: ALFACALCIDOL
     Indication: Product used for unknown indication
     Dosage: 0.5 MG, QD
     Route: 065
  13. FOLIC ACID [Concomitant]
     Active Substance: FOLIC ACID
     Indication: Arthralgia
     Dosage: 5 MG (1 TABLET), QD
     Route: 065
     Dates: start: 20210401
  14. FOLIC ACID [Concomitant]
     Active Substance: FOLIC ACID
     Indication: Bone pain
  15. FOLIC ACID [Concomitant]
     Active Substance: FOLIC ACID
     Indication: Inflammation
  16. LERTAZIN [Concomitant]
     Indication: Product used for unknown indication
     Dosage: 1000 MG, QD
     Route: 065
  17. NEXIUM [Concomitant]
     Active Substance: ESOMEPRAZOLE MAGNESIUM
     Indication: Product used for unknown indication
     Dosage: 20 MG, QD
     Route: 065
  18. VITAMIN C [Concomitant]
     Active Substance: ASCORBIC ACID
     Indication: Product used for unknown indication
     Dosage: UNK UNK, QD (FOR A MONTH)
     Route: 065
     Dates: start: 202201
  19. GAPTIN [Concomitant]
     Indication: Arthralgia
     Dosage: 100 MG, BID
     Route: 065
     Dates: start: 202111
  20. GAPTIN [Concomitant]
     Indication: Bone pain
     Dosage: 300 MG, QD
     Route: 065
  21. OMEGA 3 [Concomitant]
     Active Substance: CAPSAICIN
     Indication: Liver disorder
     Dosage: 2 DOSAGE FORM, QD (DEC 2021/NOV 2021
     Route: 065
     Dates: start: 2021
  22. OMEGA 3 [Concomitant]
     Active Substance: CAPSAICIN
     Indication: Prophylaxis

REACTIONS (16)
  - Liver function test increased [Unknown]
  - Psoriatic arthropathy [Recovering/Resolving]
  - Haemorrhage [Not Recovered/Not Resolved]
  - Irritability [Not Recovered/Not Resolved]
  - Psoriasis [Not Recovered/Not Resolved]
  - Skin exfoliation [Unknown]
  - Insomnia [Unknown]
  - Condition aggravated [Unknown]
  - Diarrhoea [Not Recovered/Not Resolved]
  - Drug ineffective [Recovering/Resolving]
  - Decreased activity [Not Recovered/Not Resolved]
  - Back pain [Not Recovered/Not Resolved]
  - Pain in extremity [Not Recovered/Not Resolved]
  - Product availability issue [Unknown]
  - Counterfeit product administered [Unknown]
  - Product prescribing error [Recovered/Resolved]

NARRATIVE: CASE EVENT DATE: 20210331
